FAERS Safety Report 7313274-4 (Version None)
Quarter: 2011Q1

REPORT INFORMATION
  Report Type: 
  Country: None (occurrence: None)
  Receive Date: 20110225
  Receipt Date: 20110217
  Transmission Date: 20110831
  Serious: Yes (Other)
  Sender: FDA-Public Use
  Company Number: JP-ASTELLAS-2011JP000541

PATIENT
  Age: 21 Year
  Sex: Male
  Weight: 105.7 kg

DRUGS (13)
  1. ASPIRIN [Concomitant]
     Indication: THROMBOSIS PROPHYLAXIS
     Dosage: 100 MG, UID/QD
     Route: 048
     Dates: start: 20050701
  2. CINAL [Concomitant]
     Dosage: 1 G, TID
     Route: 048
     Dates: start: 20080801
  3. DASEN [Concomitant]
     Dosage: 30 MG, UNKNOWN/D
     Route: 048
  4. IMURAN [Concomitant]
     Indication: PROPHYLAXIS
     Dosage: 50 MG, TID
     Route: 048
     Dates: start: 20050701
  5. MUCOSOLVAN [Concomitant]
     Dosage: 150 MG, UNKNOWN/D
     Route: 048
  6. PREDONINE [Concomitant]
     Indication: PROPHYLAXIS
     Dosage: 10 MG, BID
     Route: 048
     Dates: start: 20050701
  7. ADALAT [Concomitant]
     Indication: HYPERTENSION
     Dosage: 5 MG, BID
     Route: 048
     Dates: start: 20050701
  8. MAXALT [Concomitant]
     Indication: HEADACHE
     Dosage: UNK
     Route: 065
     Dates: start: 20060101
  9. PROGRAF [Suspect]
     Indication: ANTIPHOSPHOLIPID SYNDROME
  10. PROGRAF [Suspect]
     Indication: SYSTEMIC LUPUS ERYTHEMATOSUS
     Dosage: 3 MG, UID/QD
     Route: 048
     Dates: start: 20091229
  11. EPADEL [Concomitant]
     Indication: THROMBOSIS PROPHYLAXIS
     Dosage: 600 MG, TID
     Route: 048
  12. LOXONIN [Concomitant]
     Indication: HEADACHE
     Dosage: 60 MG, PRN
     Route: 048
     Dates: start: 20050101
  13. MUCOSTA [Concomitant]
     Dosage: 300 MG, UNKNOWN/D
     Route: 048

REACTIONS (2)
  - OFF LABEL USE [None]
  - HEADACHE [None]
